FAERS Safety Report 5875505-7 (Version None)
Quarter: 2008Q3

REPORT INFORMATION
  Report Type: 
  Country: None (occurrence: None)
  Receive Date: 20080909
  Receipt Date: 20080829
  Transmission Date: 20090109
  Serious: Yes (Other)
  Sender: FDA-Public Use
  Company Number: GR-AVENTIS-200818387GDDC

PATIENT
  Age: 52 Year
  Sex: Female

DRUGS (5)
  1. APIDRA [Suspect]
     Route: 058
     Dates: start: 20050101
  2. LANTUS [Concomitant]
  3. GLUCOPHAGE [Concomitant]
  4. CARDIOVASCULAR SYSTEM DRUGS [Concomitant]
     Indication: HYPERTENSION
  5. ANTIDEPRESSANTS [Concomitant]

REACTIONS (1)
  - WEIGHT INCREASED [None]
